FAERS Safety Report 8978345 (Version 1)
Quarter: 2012Q4

REPORT INFORMATION
  Report Type: Spontaneous
  Country: US (occurrence: None)
  Receive Date: 20121218
  Receipt Date: 20121218
  Transmission Date: 20130627
  Serious: Yes (Other)
  Sender: FDA-Public Use
  Company Number: None

PATIENT
  Age: 75 Year
  Sex: Male
  Weight: 98.88 kg

DRUGS (1)
  1. XARELTO (RIVAROXABAN) [Suspect]
     Indication: CEREBROVASCULAR ACCIDENT PROPHYLAXIS
     Dates: start: 201208, end: 20120928

REACTIONS (6)
  - Dizziness [None]
  - Vision blurred [None]
  - Swelling face [None]
  - Erythema [None]
  - Rhinalgia [None]
  - Nasal oedema [None]
